FAERS Safety Report 19819482 (Version 1)
Quarter: 2021Q3

REPORT INFORMATION
  Report Type: Spontaneous
  Country: CN (occurrence: CN)
  Receive Date: 20210913
  Receipt Date: 20210913
  Transmission Date: 20211014
  Serious: Yes (Other)
  Sender: FDA-Public Use
  Company Number: CN-SHANGHAI HENGRUI PHARMACEUTICAL CO., LTD.-2118287

PATIENT
  Age: 11 Year
  Sex: Male
  Weight: 56.4 kg

DRUGS (7)
  1. FLURBIPROFEN AXETIL [Suspect]
     Active Substance: FLURBIPROFEN AXETIL
     Route: 042
     Dates: start: 20210817, end: 20210817
  2. REMIFENTANIL HYDROCHLORIDE. [Suspect]
     Active Substance: REMIFENTANIL HYDROCHLORIDE
     Dates: start: 20210817, end: 20210817
  3. SODIUM CHLORIDE. [Concomitant]
     Active Substance: SODIUM CHLORIDE
     Dates: start: 20210817, end: 20210817
  4. SEVOFLURANE USP, 100%, LIQUID FOR INHALATION [Suspect]
     Active Substance: SEVOFLURANE
     Indication: INDUCTION OF ANAESTHESIA
     Route: 055
     Dates: start: 20210817, end: 20210817
  5. DEZOCINE [Suspect]
     Active Substance: DEZOCINE
     Route: 042
     Dates: start: 20210817, end: 20210817
  6. SUFENTANIL CITRATE. [Suspect]
     Active Substance: SUFENTANIL CITRATE
     Dates: start: 20210817, end: 20210817
  7. ATROPINE SULFATE. [Suspect]
     Active Substance: ATROPINE SULFATE
     Route: 042
     Dates: start: 20210817, end: 20210817

REACTIONS (3)
  - Rash pruritic [Recovered/Resolved]
  - Abdominal pain [Recovered/Resolved]
  - Oedema [Recovered/Resolved]

NARRATIVE: CASE EVENT DATE: 20210817
